FAERS Safety Report 9917689 (Version 1)
Quarter: 2014Q1

REPORT INFORMATION
  Report Type: Spontaneous
  Country: AU (occurrence: AU)
  Receive Date: 20140221
  Receipt Date: 20140221
  Transmission Date: 20141002
  Serious: Yes (Other)
  Sender: FDA-Public Use
  Company Number: AU-BAXTER-2014BAX008913

PATIENT
  Age: 52 Year
  Sex: Male

DRUGS (8)
  1. KIOVIG NORMAL IMMUNOGLOBULIN (HUMAN) 1G/10ML FOR INTRAVENOUS USE INJEC [Suspect]
     Indication: IMMUNOSUPPRESSION
     Dosage: 1 G/KG
     Route: 042
  2. ENOXAPARIN [Suspect]
     Indication: PROPHYLAXIS
     Route: 065
  3. BASILIXIMAB [Concomitant]
     Indication: IMMUNOSUPPRESSION
     Route: 065
  4. PREDNISOLONE [Concomitant]
     Indication: IMMUNOSUPPRESSION
     Route: 065
  5. MYCOPHENOLATE MOFETIL [Concomitant]
     Indication: IMMUNOSUPPRESSION
  6. MYCOPHENOLATE MOFETIL [Concomitant]
  7. MYCOPHENOLATE MOFETIL [Concomitant]
     Route: 065
  8. TACROLIMUS [Concomitant]
     Indication: IMMUNOSUPPRESSION
     Dosage: TO ACHIEVE LEVELS OF 4 NG/ML
     Route: 065

REACTIONS (2)
  - Pyrexia [Unknown]
  - Thrombotic microangiopathy [Recovering/Resolving]
